FAERS Safety Report 9785176 (Version 1)
Quarter: 2013Q4

REPORT INFORMATION
  Report Type: Spontaneous
  Country: BR (occurrence: BR)
  Receive Date: 20131227
  Receipt Date: 20131227
  Transmission Date: 20140711
  Serious: Yes (Other)
  Sender: FDA-Public Use
  Company Number: BR-MERCK-1312BRA009022

PATIENT
  Sex: Female
  Weight: 55 kg

DRUGS (3)
  1. MERCILON [Suspect]
     Indication: OVARIAN CYST
     Dosage: 150/20 MICROGRAM, QD
     Route: 048
     Dates: start: 2000, end: 2001
  2. MERCILON [Suspect]
     Dosage: 150/20 MICROGRAM, QD
     Route: 048
     Dates: start: 2001, end: 2003
  3. MERCILON [Suspect]
     Dosage: 150/20 MICROGRAM, QD
     Route: 048
     Dates: start: 2003, end: 2007

REACTIONS (6)
  - Caesarean section [Recovered/Resolved]
  - Complication of delivery [Recovered/Resolved]
  - Maternal exposure before pregnancy [Unknown]
  - Off label use [Unknown]
  - Off label use [Unknown]
  - Off label use [Unknown]
